FAERS Safety Report 17996678 (Version 1)
Quarter: 2020Q3

REPORT INFORMATION
  Report Type: Spontaneous
  Country: CN (occurrence: CN)
  Receive Date: 20200708
  Receipt Date: 20200708
  Transmission Date: 20201103
  Serious: Yes (Other)
  Sender: FDA-Public Use
  Company Number: CN-SA-2020SA174082

PATIENT

DRUGS (6)
  1. RABEPRAZOLE SODIUM. [Suspect]
     Active Substance: RABEPRAZOLE SODIUM
     Indication: GASTRITIS PROPHYLAXIS
     Dosage: 10 MG, QD
     Route: 048
     Dates: start: 20200610, end: 20200620
  2. LEVOFLOXACIN. [Suspect]
     Active Substance: LEVOFLOXACIN
     Indication: ANTI-INFECTIVE THERAPY
     Dosage: 0.5 G, QD
     Route: 048
     Dates: start: 20200610, end: 20200620
  3. IRBESARTAN. [Suspect]
     Active Substance: IRBESARTAN
     Indication: HYPOTENSION
     Dosage: 0.15 G, QD
     Route: 048
     Dates: start: 20200610, end: 20200620
  4. METFORMIN HYDROCHLORIDE. [Concomitant]
     Active Substance: METFORMIN HYDROCHLORIDE
     Dosage: 10 MG, QD
     Route: 048
  5. AMOXICILLIN TRIHYDRATE/POTASSIUM CLAVULANATE [Suspect]
     Active Substance: AMOXICILLIN\CLAVULANATE POTASSIUM
     Indication: ANTI-INFECTIVE THERAPY
     Dosage: 228.5 MG, Q12H
     Route: 048
     Dates: start: 20200610, end: 20200620
  6. TRIMEBUTINE MALEATE [Suspect]
     Active Substance: TRIMEBUTINE MALEATE
     Indication: HYPERCHLORHYDRIA
     Dosage: 0.2 G, TID
     Route: 048
     Dates: start: 20200610, end: 20200620

REACTIONS (8)
  - Hyperhidrosis [Recovering/Resolving]
  - Drug-induced liver injury [Recovering/Resolving]
  - Hypotension [Recovered/Resolved]
  - Hepatic function abnormal [Recovering/Resolving]
  - Vomiting [Recovering/Resolving]
  - Nausea [Recovering/Resolving]
  - Pallor [Recovering/Resolving]
  - Peripheral coldness [Recovering/Resolving]

NARRATIVE: CASE EVENT DATE: 20200620
